FAERS Safety Report 15670946 (Version 3)
Quarter: 2019Q2

REPORT INFORMATION
  Report Type: Spontaneous
  Country: US (occurrence: US)
  Receive Date: 20181129
  Receipt Date: 20190403
  Transmission Date: 20190711
  Serious: No
  Sender: FDA-Public Use
  Company Number: US-PFIZER INC-2018486920

PATIENT
  Age: 61 Year
  Sex: Female

DRUGS (2)
  1. LATANOPROST. [Suspect]
     Active Substance: LATANOPROST
     Indication: GLAUCOMA
     Dosage: UNK, 1X/DAY
     Dates: start: 2014
  2. LATANOPROST. [Suspect]
     Active Substance: LATANOPROST
     Indication: OCULAR HYPERTENSION
     Dosage: UNK, 1X/DAY (DAILY AT NIGHT)
     Route: 061
     Dates: start: 2013, end: 2017

REACTIONS (7)
  - Ocular hyperaemia [Not Recovered/Not Resolved]
  - Vision blurred [Unknown]
  - Disease recurrence [Unknown]
  - Skin discolouration [Unknown]
  - Dry eye [Unknown]
  - Eye irritation [Recovered/Resolved]
  - Eye pruritus [Not Recovered/Not Resolved]

NARRATIVE: CASE EVENT DATE: 2014
